FAERS Safety Report 7252909-1 (Version None)
Quarter: 2011Q1

REPORT INFORMATION
  Report Type: 
  Country: None (occurrence: None)
  Receive Date: 20110129
  Receipt Date: 20100302
  Transmission Date: 20110831
  Serious: No
  Sender: FDA-Public Use
  Company Number: US-ABBOTT-10P-163-0629712-00

PATIENT
  Sex: Female
  Weight: 67.192 kg

DRUGS (4)
  1. HUMIRA [Suspect]
     Indication: CROHN'S DISEASE
  2. AMBIEN [Concomitant]
  3. CYMBALTA [Concomitant]
  4. HUMIRA [Suspect]
     Indication: COLITIS ULCERATIVE
     Dosage: FORM STRENGTH: 40MG;  UNIT DOSE: 80MG
     Route: 058
     Dates: start: 20100226

REACTIONS (2)
  - INJECTION SITE HAEMATOMA [None]
  - INJECTION SITE PAIN [None]
